FAERS Safety Report 9165701 (Version 1)
Quarter: 2013Q1

REPORT INFORMATION
  Report Type: Spontaneous
  Country: US (occurrence: None)
  Receive Date: 20130314
  Receipt Date: 20130314
  Transmission Date: 20140127
  Serious: Yes (Life-Threatening, Other)
  Sender: FDA-Public Use
  Company Number: None

PATIENT
  Age: 64 Year
  Sex: Female
  Weight: 60.78 kg

DRUGS (1)
  1. ANASTROZOLE [Suspect]
     Indication: BREAST CANCER
     Dosage: 1 MG TAB ZYD, 1 PER DAY, 30 TABS

REACTIONS (9)
  - Asthenia [None]
  - Abasia [None]
  - Nausea [None]
  - Diarrhoea [None]
  - Dehydration [None]
  - Oral candidiasis [None]
  - Hypophagia [None]
  - Dizziness [None]
  - Asthenia [None]
